FAERS Safety Report 17551912 (Version 3)
Quarter: 2020Q3

REPORT INFORMATION
  Report Type: Report from Study
  Country: IN (occurrence: IN)
  Receive Date: 20200317
  Receipt Date: 20200707
  Transmission Date: 20201105
  Serious: Yes (Other)
  Sender: FDA-Public Use
  Company Number: NVSC2020IN074118

PATIENT
  Age: 54 Year
  Sex: Male
  Weight: 80 kg

DRUGS (2)
  1. GALVUS MET [Suspect]
     Active Substance: METFORMIN HYDROCHLORIDE\VILDAGLIPTIN
     Indication: DIABETES MELLITUS
     Dosage: SINCE 4 YEARS
     Route: 048
  2. GALVUS [Suspect]
     Active Substance: VILDAGLIPTIN
     Indication: DIABETES MELLITUS
     Dosage: SINCE 4 YEARS
     Route: 048

REACTIONS (5)
  - Hyperglycaemia [Unknown]
  - Glycosylated haemoglobin increased [Unknown]
  - Body mass index [Unknown]
  - Periarthritis [Unknown]
  - Overweight [Unknown]

NARRATIVE: CASE EVENT DATE: 20190320
